FAERS Safety Report 24321373 (Version 3)
Quarter: 2024Q4

REPORT INFORMATION
  Report Type: Report from Study
  Country: US (occurrence: US)
  Receive Date: 20240916
  Receipt Date: 20241016
  Transmission Date: 20250114
  Serious: Yes (Hospitalization)
  Sender: JOHNSON AND JOHNSON
  Company Number: US-JNJFOC-20240905870

PATIENT
  Age: 69 Year
  Sex: Male
  Weight: 65.9 kg

DRUGS (3)
  1. EPOPROSTENOL SODIUM [Suspect]
     Active Substance: EPOPROSTENOL SODIUM
     Indication: Pulmonary arterial hypertension
     Dosage: EXPIRY DATE: 31-DEC-2025
     Route: 042
  2. REVATIO [Concomitant]
     Active Substance: SILDENAFIL CITRATE
  3. ELIQUIS [Concomitant]
     Active Substance: APIXABAN

REACTIONS (4)
  - Cardiac failure [Unknown]
  - Device occlusion [Unknown]
  - Pericardial effusion [Unknown]
  - Underdose [Unknown]

NARRATIVE: CASE EVENT DATE: 20241006
